FAERS Safety Report 20600033 (Version 1)
Quarter: 2022Q1

REPORT INFORMATION
  Report Type: Spontaneous
  Country: DK (occurrence: DK)
  Receive Date: 20220316
  Receipt Date: 20220316
  Transmission Date: 20220424
  Serious: Yes (Disabling)
  Sender: FDA-Public Use
  Company Number: None

PATIENT
  Age: 20 Year
  Sex: Male

DRUGS (1)
  1. ADALIMUMAB [Suspect]
     Active Substance: ADALIMUMAB
     Indication: Psoriasis
     Dosage: 80 MILLIGRAM (FROM 02SEP2021 40 MG EVERY TWO WEEKS.STRENGTH: 40 MG.)
     Route: 065
     Dates: start: 20210825, end: 20211013

REACTIONS (1)
  - Chronic spontaneous urticaria [Not Recovered/Not Resolved]

NARRATIVE: CASE EVENT DATE: 20210901
